FAERS Safety Report 5606041-0 (Version None)
Quarter: 2008Q1

REPORT INFORMATION
  Report Type: 
  Country: None (occurrence: None)
  Receive Date: 20080129
  Receipt Date: 20080118
  Transmission Date: 20080703
  Serious: Yes (Life-Threatening, Hospitalization)
  Sender: FDA-Public Use
  Company Number: JP-JNJFOC-20071103895

PATIENT
  Sex: Male
  Weight: 56 kg

DRUGS (15)
  1. DUROTEP [Suspect]
     Route: 062
  2. DUROTEP [Suspect]
     Route: 062
  3. DUROTEP [Suspect]
     Route: 062
  4. DUROTEP [Suspect]
     Indication: CANCER PAIN
     Route: 062
  5. PRIMPERAN INJ [Concomitant]
     Dosage: 2 DF X 1 PER 1 DAY
     Route: 041
  6. PRIMPERAN INJ [Concomitant]
     Indication: PROPHYLAXIS
     Route: 041
  7. PANTOL [Concomitant]
     Dosage: 6 DF X 1 PER 1 DAY
     Route: 041
  8. PANTOL [Concomitant]
     Indication: GASTROINTESTINAL HYPOMOTILITY
     Route: 041
  9. SODIUM CHLORIDE INJ [Concomitant]
     Dosage: 1 DFX 1 PER 1 DAY
     Route: 041
  10. SODIUM CHLORIDE INJ [Concomitant]
     Indication: ELECTROLYTE SUBSTITUTION THERAPY
     Route: 041
  11. BETAMETHASONE [Concomitant]
     Dosage: 3 DF X 1 PER 1 DAY
     Route: 041
  12. BETAMETHASONE [Concomitant]
     Dosage: 2 DF X 1 PER 1 DAY
     Route: 041
  13. BETAMETHASONE [Concomitant]
     Indication: MALAISE
     Route: 041
  14. GLUACATO 35 [Concomitant]
     Route: 041
  15. GLUACATO 35 [Concomitant]
     Indication: FLUID REPLACEMENT
     Route: 041

REACTIONS (6)
  - AGGRESSION [None]
  - MALAISE [None]
  - MENTAL DISORDER [None]
  - OVERDOSE [None]
  - PAIN [None]
  - SOMNOLENCE [None]
